FAERS Safety Report 11004984 (Version 2)
Quarter: 2015Q2

REPORT INFORMATION
  Report Type: Spontaneous
  Country: US (occurrence: US)
  Receive Date: 20150409
  Receipt Date: 20150507
  Transmission Date: 20150821
  Serious: Yes (Death, Life-Threatening, Hospitalization, Disabling, Other)
  Sender: FDA-Public Use
  Company Number: US-MERCK-1504USA003864

PATIENT
  Sex: Female
  Weight: 68.27 kg

DRUGS (1)
  1. JANUVIA [Suspect]
     Active Substance: SITAGLIPTIN PHOSPHATE
     Indication: TYPE 2 DIABETES MELLITUS
     Dosage: 100 MG, QD
     Route: 048
     Dates: start: 20100622, end: 20120620

REACTIONS (15)
  - Hyperlipidaemia [Unknown]
  - Salpingectomy [Unknown]
  - Metastases to lymph nodes [Unknown]
  - Adenocarcinoma of colon [Unknown]
  - Hyponatraemia [Unknown]
  - Bone lesion [Unknown]
  - Hypokalaemia [Unknown]
  - Hypertension [Unknown]
  - Constipation [Unknown]
  - Pancreatic carcinoma metastatic [Not Recovered/Not Resolved]
  - Death [Fatal]
  - Aortic arteriosclerosis [Unknown]
  - Appendicectomy [Unknown]
  - Splenic vein occlusion [Unknown]
  - Hysterectomy [Unknown]

NARRATIVE: CASE EVENT DATE: 20120601
